FAERS Safety Report 9351536 (Version 1)
Quarter: 2013Q2

REPORT INFORMATION
  Report Type: Spontaneous
  Country: NL (occurrence: NL)
  Receive Date: 20130617
  Receipt Date: 20130617
  Transmission Date: 20140414
  Serious: Yes (Hospitalization)
  Sender: FDA-Public Use
  Company Number: NL-TEVA-411369ISR

PATIENT
  Age: 47 Year
  Sex: Female
  Weight: 60 kg

DRUGS (2)
  1. TRIMETHOPRIM TABLET 300MG [Suspect]
     Indication: URINARY TRACT INFECTION
     Dosage: 300 MILLIGRAM DAILY; ONCE DAILY ONE PIECE
     Route: 048
     Dates: start: 20120925, end: 20120925
  2. COPAXONE INJVLST 20MG/ML WWSP 1ML [Concomitant]
     Dosage: 1 DOSAGE FORMS DAILY; ONCE DAILY ONE PIECE
     Route: 065

REACTIONS (2)
  - Meningitis [Unknown]
  - Hypersensitivity [Unknown]
